FAERS Safety Report 19740770 (Version 2)
Quarter: 2021Q3

REPORT INFORMATION
  Report Type: Spontaneous
  Country: MX (occurrence: MX)
  Receive Date: 20210824
  Receipt Date: 20210917
  Transmission Date: 20211014
  Serious: Yes (Hospitalization, Other)
  Sender: FDA-Public Use
  Company Number: MX-ALLERGAN-2129148US

PATIENT
  Sex: Male

DRUGS (4)
  1. BOTOX [Suspect]
     Active Substance: ONABOTULINUMTOXINA
     Indication: MUSCLE SPASTICITY
     Dosage: 20 UNITS, SINGLE
     Route: 030
     Dates: start: 20210816, end: 20210816
  2. BOTOX [Suspect]
     Active Substance: ONABOTULINUMTOXINA
     Dosage: 60 UNITS, SINGLE
     Route: 030
     Dates: start: 20210816, end: 20210816
  3. BOTOX [Suspect]
     Active Substance: ONABOTULINUMTOXINA
     Dosage: 20 UNITS, SINGLE
     Route: 030
     Dates: start: 20210816, end: 20210816
  4. BOTOX [Suspect]
     Active Substance: ONABOTULINUMTOXINA
     Dosage: 80 UNITS, SINGLE
     Route: 030
     Dates: start: 20210816, end: 20210816

REACTIONS (10)
  - Hypocalciuria [Unknown]
  - Haematemesis [Recovered/Resolved]
  - Generalised tonic-clonic seizure [Recovered/Resolved]
  - Clonus [Recovered/Resolved]
  - Tremor [Recovered/Resolved]
  - Hypertonia [Recovered/Resolved]
  - Nausea [Recovered/Resolved]
  - Gaze palsy [Recovered/Resolved]
  - Feeling abnormal [Unknown]
  - Somnolence [Recovered/Resolved]

NARRATIVE: CASE EVENT DATE: 20210816
